FAERS Safety Report 9375888 (Version 1)
Quarter: 2013Q2

REPORT INFORMATION
  Report Type: Spontaneous
  Country: DE (occurrence: DE)
  Receive Date: 20130628
  Receipt Date: 20130628
  Transmission Date: 20140414
  Serious: Yes (Life-Threatening, Hospitalization)
  Sender: FDA-Public Use
  Company Number: DE-ALLERGAN-1309551US

PATIENT
  Age: 36 Year
  Sex: Female
  Weight: 50 kg

DRUGS (2)
  1. BOTULINUM TOXIN TYPE A UNK [Suspect]
     Indication: OESOPHAGEAL ACHALASIA
     Dosage: UNK UNK, SINGLE
     Dates: start: 20130514, end: 20130514
  2. BOTULINUM TOXIN TYPE A UNK [Suspect]
     Dosage: UNK, SINGLE
     Dates: start: 20130525, end: 20130525

REACTIONS (4)
  - Hypercapnia [Not Recovered/Not Resolved]
  - Respiratory failure [Not Recovered/Not Resolved]
  - Dyspnoea [Not Recovered/Not Resolved]
  - Off label use [Unknown]
